FAERS Safety Report 15269860 (Version 1)
Quarter: 2018Q3

REPORT INFORMATION
  Report Type: Spontaneous
  Country: JP (occurrence: JP)
  Receive Date: 20180813
  Receipt Date: 20180813
  Transmission Date: 20181010
  Serious: Yes (Hospitalization, Disabling)
  Sender: FDA-Public Use
  Company Number: JP-ASTRAZENECA-2017SF13731

PATIENT
  Sex: Male

DRUGS (3)
  1. SYMBICORT [Suspect]
     Active Substance: BUDESONIDE\FORMOTEROL FUMARATE DIHYDRATE
     Route: 055
     Dates: start: 201806
  2. SYMBICORT [Suspect]
     Active Substance: BUDESONIDE\FORMOTEROL FUMARATE DIHYDRATE
     Dosage: ONE INHALATION ONCE DAILY
     Route: 055
     Dates: start: 201701
  3. SYMBICORT [Suspect]
     Active Substance: BUDESONIDE\FORMOTEROL FUMARATE DIHYDRATE
     Dosage: IN THE MORNING AND EVENING
     Route: 055
     Dates: start: 20171102

REACTIONS (9)
  - Bradyarrhythmia [Unknown]
  - Nasopharyngitis [Unknown]
  - Underdose [Unknown]
  - Wheezing [Unknown]
  - Off label use [Unknown]
  - Dyspnoea [Recovering/Resolving]
  - Wrong technique in product usage process [Unknown]
  - Intentional product use issue [Unknown]
  - Myalgia [Unknown]

NARRATIVE: CASE EVENT DATE: 20171102
